FAERS Safety Report 18498238 (Version 1)
Quarter: 2020Q4

REPORT INFORMATION
  Report Type: Spontaneous
  Country: US (occurrence: US)
  Receive Date: 20201112
  Receipt Date: 20201112
  Transmission Date: 20210114
  Serious: Yes (Hospitalization, Other)
  Sender: FDA-Public Use
  Company Number: US-EPIC PHARMA LLC-2020EPC00350

PATIENT
  Sex: Male

DRUGS (15)
  1. OPANA [Suspect]
     Active Substance: OXYMORPHONE HYDROCHLORIDE
  2. ROXICODONE [Suspect]
     Active Substance: OXYCODONE HYDROCHLORIDE
  3. MS CONTIN [Suspect]
     Active Substance: MORPHINE SULFATE
  4. HYDROCODONE AND ACETAMINOPHEN [Suspect]
     Active Substance: ACETAMINOPHEN\HYDROCODONE
  5. OXYCODONE EXTENDED RELEASE [Suspect]
     Active Substance: OXYCODONE
  6. MORPHINE EXTENDED RELEASE [Suspect]
     Active Substance: MORPHINE
  7. OXY IR [Suspect]
     Active Substance: OXYCODONE HYDROCHLORIDE
  8. MSIR [Suspect]
     Active Substance: MORPHINE SULFATE
  9. WELLBUTRIN [Suspect]
     Active Substance: BUPROPION HYDROCHLORIDE
  10. OXYCONTIN [Suspect]
     Active Substance: OXYCODONE HYDROCHLORIDE
  11. TRAMADOL EXTENDED RELEASE [Suspect]
     Active Substance: TRAMADOL HYDROCHLORIDE
  12. OXYMORPHONE [Suspect]
     Active Substance: OXYMORPHONE
  13. DILAUDID [Suspect]
     Active Substance: HYDROMORPHONE HYDROCHLORIDE
  14. OXYCODONE IMMEDIATE RELEASE [Suspect]
     Active Substance: OXYCODONE
  15. OXYCODONE AND ACETAMINOPHEN [Suspect]
     Active Substance: ACETAMINOPHEN\OXYCODONE HYDROCHLORIDE

REACTIONS (11)
  - Dependence [Unknown]
  - Confusional state [Unknown]
  - Hospitalisation [Unknown]
  - Seizure [Unknown]
  - Insomnia [Unknown]
  - Facial bones fracture [Unknown]
  - Dyspnoea [Unknown]
  - Cerebrovascular accident [Unknown]
  - Fall [Unknown]
  - Amnesia [Unknown]
  - Feeding disorder [Unknown]
